FAERS Safety Report 17739454 (Version 1)
Quarter: 2020Q2

REPORT INFORMATION
  Report Type: Spontaneous
  Country: TR (occurrence: TR)
  Receive Date: 20200504
  Receipt Date: 20200504
  Transmission Date: 20200714
  Serious: Yes (Life-Threatening, Hospitalization, Other)
  Sender: FDA-Public Use
  Company Number: TR-ACCORD-180106

PATIENT
  Age: 54 Year
  Sex: Female

DRUGS (3)
  1. CAPTOPRIL. [Suspect]
     Active Substance: CAPTOPRIL
     Route: 048
  2. AMLODIPINE [Suspect]
     Active Substance: AMLODIPINE BESYLATE
     Route: 048
  3. DOXAZOSIN [Suspect]
     Active Substance: DOXAZOSIN MESYLATE
     Route: 048

REACTIONS (7)
  - Rhonchi [Recovered/Resolved]
  - Poisoning [Unknown]
  - Intentional overdose [Unknown]
  - Tachycardia [Recovered/Resolved]
  - Haemodynamic instability [Recovered/Resolved]
  - Hypotension [Recovered/Resolved]
  - Suicidal ideation [Unknown]
